FAERS Safety Report 10922700 (Version 1)
Quarter: 2015Q1

REPORT INFORMATION
  Report Type: Spontaneous
  Country: SE (occurrence: SE)
  Receive Date: 20150317
  Receipt Date: 20150317
  Transmission Date: 20150721
  Serious: Yes (Disabling, Other)
  Sender: FDA-Public Use
  Company Number: SE-GLAXOSMITHKLINE-SE2015032275

PATIENT
  Age: 23 Year
  Sex: Female

DRUGS (1)
  1. VOXRA [Suspect]
     Active Substance: BUPROPION HYDROCHLORIDE
     Indication: DISTURBANCE IN ATTENTION
     Route: 048
     Dates: start: 20140207

REACTIONS (2)
  - Off label use [Recovered/Resolved with Sequelae]
  - Basedow^s disease [Recovered/Resolved with Sequelae]

NARRATIVE: CASE EVENT DATE: 20140226
